FAERS Safety Report 6043721-X (Version None)
Quarter: 2009Q1

REPORT INFORMATION
  Report Type: 
  Country: None (occurrence: None)
  Receive Date: 20090115
  Receipt Date: 20090102
  Transmission Date: 20090719
  Serious: Yes (Hospitalization)
  Sender: FDA-Public Use
  Company Number: 136723

PATIENT
  Age: 57 Year
  Sex: Male
  Weight: 46.7205 kg

DRUGS (7)
  1. VANCOMYCIN [Suspect]
     Indication: CELLULITIS
     Dosage: 1 G, INTRAVENOUS, 1 G, INTRAVENOUS
     Route: 042
     Dates: start: 20081101, end: 20081125
  2. VANCOMYCIN [Suspect]
     Indication: STAPHYLOCOCCAL INFECTION
     Dosage: 1 G, INTRAVENOUS, 1 G, INTRAVENOUS
     Route: 042
     Dates: start: 20081101, end: 20081125
  3. VANCOMYCIN [Suspect]
     Indication: CELLULITIS
     Dosage: 1 G, INTRAVENOUS, 1 G, INTRAVENOUS
     Route: 042
     Dates: start: 20081101, end: 20081125
  4. VANCOMYCIN [Suspect]
     Indication: STAPHYLOCOCCAL INFECTION
     Dosage: 1 G, INTRAVENOUS, 1 G, INTRAVENOUS
     Route: 042
     Dates: start: 20081101, end: 20081125
  5. ENOXAPARIN [Concomitant]
  6. FUROSEMIDE [Concomitant]
  7. GABAPENTIN [Concomitant]

REACTIONS (4)
  - BLOOD COUNT ABNORMAL [None]
  - HYPOGLYCAEMIA [None]
  - NEUTROPHIL COUNT DECREASED [None]
  - WHITE BLOOD CELL COUNT DECREASED [None]
